FAERS Safety Report 14687847 (Version 10)
Quarter: 2020Q1

REPORT INFORMATION
  Report Type: Spontaneous
  Country: JP (occurrence: JP)
  Receive Date: 20180328
  Receipt Date: 20200309
  Transmission Date: 20200409
  Serious: Yes (Hospitalization)
  Sender: FDA-Public Use
  Company Number: PHJP2018JP007048

PATIENT
  Age: 69 Year
  Sex: Male

DRUGS (5)
  1. ELTROMBOPAG [Concomitant]
     Active Substance: ELTROMBOPAG
     Dosage: 100 MG, QD
     Route: 065
  2. ELTROMBOPAG [Concomitant]
     Active Substance: ELTROMBOPAG
     Indication: PLATELET COUNT DECREASED
     Dosage: 75 MG, QD
     Route: 065
  3. ROMIPLATE [Concomitant]
     Active Substance: ROMIPLOSTIM
     Indication: PRODUCT USED FOR UNKNOWN INDICATION
     Route: 065
  4. NEORAL [Suspect]
     Active Substance: CYCLOSPORINE
     Indication: APLASTIC ANAEMIA
     Dosage: UNK
     Route: 048
  5. ELTROMBOPAG [Concomitant]
     Active Substance: ELTROMBOPAG
     Dosage: 62.5 MG, QD
     Route: 065

REACTIONS (6)
  - Platelet count decreased [Unknown]
  - Product use in unapproved indication [Unknown]
  - Agranulocytosis [Recovered/Resolved]
  - Neutrophil count decreased [Unknown]
  - Neutrophil count decreased [Recovered/Resolved]
  - Cystitis haemorrhagic [Unknown]

NARRATIVE: CASE EVENT DATE: 201811
